FAERS Safety Report 17908853 (Version 1)
Quarter: 2020Q2

REPORT INFORMATION
  Report Type: Spontaneous
  Country: CA (occurrence: CA)
  Receive Date: 20200617
  Receipt Date: 20200617
  Transmission Date: 20200714
  Serious: Yes (Life-Threatening, Hospitalization)
  Sender: FDA-Public Use
  Company Number: CA-MYLANLABS-2020M1056804

PATIENT
  Age: 20 Month
  Sex: Male
  Weight: 15 kg

DRUGS (3)
  1. NALOXONE [Suspect]
     Active Substance: NALOXONE
     Indication: DEPRESSED LEVEL OF CONSCIOUSNESS
     Dosage: 0.15 MILLIGRAM(TWICE AT 1-HOUR INTERVAL)
     Route: 065
  2. MORPHINE [Suspect]
     Active Substance: MORPHINE
     Indication: PRODUCT USED FOR UNKNOWN INDICATION
     Dosage: 2 MILLIGRAM (BEFORE DISCHARGE)
     Route: 048
  3. MORPHINE [Suspect]
     Active Substance: MORPHINE
     Dosage: 3 MILLIGRAM(2 HRS AFTER DISCHARGE (AT HOME)
     Route: 048

REACTIONS (8)
  - Brain oedema [Recovering/Resolving]
  - Toxicity to various agents [Recovering/Resolving]
  - Neurotoxicity [Recovering/Resolving]
  - Ataxia [Recovered/Resolved]
  - Accidental overdose [Recovering/Resolving]
  - Dysmetria [Recovered/Resolved]
  - Blindness cortical [Recovering/Resolving]
  - Drug ineffective [Unknown]
